FAERS Safety Report 8912742 (Version 1)
Quarter: 2012Q4

REPORT INFORMATION
  Report Type: 
  Country: JP (occurrence: JP)
  Receive Date: 20121116
  Receipt Date: 20121116
  Transmission Date: 20130627
  Serious: Yes (Hospitalization)
  Sender: FDA-Public Use
  Company Number: JP-ROCHE-1155432

PATIENT
  Sex: Female

DRUGS (8)
  1. ALTEPLASE [Suspect]
     Indication: EMBOLIC STROKE
     Route: 042
     Dates: start: 20120218, end: 20120218
  2. RADICUT [Suspect]
     Indication: EMBOLIC STROKE
     Route: 065
     Dates: start: 20120218, end: 20120218
  3. RADICUT [Suspect]
     Route: 065
     Dates: start: 20120219, end: 20120224
  4. GLYCEOL [Concomitant]
     Route: 065
     Dates: start: 20120219, end: 20120224
  5. HEPARIN SODIUM [Concomitant]
     Route: 065
     Dates: start: 20120220, end: 20120304
  6. WARFARIN POTASSIUM [Concomitant]
     Route: 065
     Dates: start: 20120224
  7. VASODILATOR [Concomitant]
  8. INSULIN [Concomitant]

REACTIONS (2)
  - Haemorrhagic infarction [Recovered/Resolved]
  - Cystitis haemorrhagic [Recovered/Resolved]
